FAERS Safety Report 23816235 (Version 1)
Quarter: 2024Q2

REPORT INFORMATION
  Report Type: Spontaneous
  Country: US (occurrence: US)
  Receive Date: 20240503
  Receipt Date: 20240503
  Transmission Date: 20240716
  Serious: Yes (Other)
  Sender: FDA-Public Use
  Company Number: US-PFIZER INC-PV202400056792

PATIENT
  Age: 33 Year
  Sex: Male

DRUGS (2)
  1. HYDROMORPHONE HYDROCHLORIDE [Suspect]
     Active Substance: HYDROMORPHONE HYDROCHLORIDE
     Dosage: CONTINUOUS INFUSION WITH AS-NEEDED BOLUSES
  2. KETAMINE [Concomitant]
     Active Substance: KETAMINE
     Dosage: LOW DOSE INFUSION

REACTIONS (2)
  - Hyperaesthesia [Unknown]
  - Rhabdomyolysis [Recovered/Resolved]
